FAERS Safety Report 8928937 (Version 1)
Quarter: 2012Q4

REPORT INFORMATION
  Report Type: 
  Country: PL (occurrence: PL)
  Receive Date: 20121128
  Receipt Date: 20121128
  Transmission Date: 20130627
  Serious: Yes (Other)
  Sender: FDA-Public Use
  Company Number: PL-AMGEN-POLSP2012075646

PATIENT
  Age: 46 Year
  Sex: Female
  Weight: 75 kg

DRUGS (3)
  1. ENBREL [Suspect]
     Indication: RHEUMATOID ARTHRITIS
     Dosage: 50 mg, weekly
     Route: 058
     Dates: start: 20120926, end: 20121107
  2. METHOTREXAT                        /00113801/ [Concomitant]
     Indication: RHEUMATOID ARTHRITIS
     Dosage: 25 mg, UNK
     Route: 048
  3. SULFASALAZIN EN [Concomitant]
     Indication: RHEUMATOID ARTHRITIS
     Dosage: 2 g, UNK
     Route: 048

REACTIONS (4)
  - Injection site extravasation [Recovered/Resolved]
  - Rash pruritic [Recovered/Resolved]
  - Injection site oedema [Recovered/Resolved]
  - Injection site erythema [Recovered/Resolved]
